FAERS Safety Report 13373527 (Version 1)
Quarter: 2017Q1

REPORT INFORMATION
  Report Type: Spontaneous
  Country: BE (occurrence: BE)
  Receive Date: 20170327
  Receipt Date: 20170327
  Transmission Date: 20170429
  Serious: Yes (Other)
  Sender: FDA-Public Use
  Company Number: BE-TEVA-752723ROM

PATIENT
  Age: 13 Year
  Sex: Female
  Weight: 69 kg

DRUGS (2)
  1. PROVIGIL [Suspect]
     Active Substance: MODAFINIL
     Indication: NARCOLEPSY
     Dosage: 200 MILLIGRAM DAILY;
     Route: 048
     Dates: start: 201511, end: 201606
  2. PROVIGIL [Suspect]
     Active Substance: MODAFINIL
     Indication: CATAPLEXY

REACTIONS (9)
  - Glucocorticoid deficiency [Recovered/Resolved]
  - Nervousness [Recovered/Resolved]
  - Amenorrhoea [Recovered/Resolved]
  - Anxiety [Recovered/Resolved]
  - Mood swings [Recovered/Resolved]
  - Hypopituitarism [Recovered/Resolved]
  - Agitation [Recovered/Resolved]
  - Abnormal behaviour [Recovered/Resolved]
  - Hypothyroidism [Recovered/Resolved]

NARRATIVE: CASE EVENT DATE: 201511
